FAERS Safety Report 7540755-0 (Version None)
Quarter: 2011Q2

REPORT INFORMATION
  Report Type: 
  Country: None (occurrence: None)
  Receive Date: 20110610
  Receipt Date: 20110603
  Transmission Date: 20111010
  Serious: Yes (Hospitalization)
  Sender: FDA-Public Use
  Company Number: DE-ABBOTT-11P-062-0707153-00

PATIENT
  Sex: Female

DRUGS (4)
  1. CORTISONE ACETATE [Concomitant]
     Indication: PRODUCT USED FOR UNKNOWN INDICATION
     Dates: end: 20100801
  2. HUMIRA [Suspect]
     Indication: CROHN'S DISEASE
     Route: 058
     Dates: start: 20101129, end: 20110214
  3. HUMIRA [Suspect]
     Dates: start: 20110314
  4. REMICADE [Concomitant]
     Indication: PRODUCT USED FOR UNKNOWN INDICATION
     Dates: end: 20101101

REACTIONS (12)
  - COUGH [None]
  - ABDOMINAL WOUND DEHISCENCE [None]
  - COLITIS ULCERATIVE [None]
  - CROHN'S DISEASE [None]
  - COLONIC STENOSIS [None]
  - IMPAIRED HEALING [None]
  - ABDOMINAL PAIN [None]
  - VOMITING [None]
  - NASOPHARYNGITIS [None]
  - WOUND SECRETION [None]
  - RHINITIS [None]
  - DIARRHOEA [None]
